FAERS Safety Report 14976722 (Version 1)
Quarter: 2018Q2

REPORT INFORMATION
  Report Type: Report from Study
  Country: US (occurrence: US)
  Receive Date: 20180605
  Receipt Date: 20180605
  Transmission Date: 20180711
  Serious: Yes (Death, Hospitalization)
  Sender: FDA-Public Use
  Company Number: US-EXELIXIS-CABO-18014315

PATIENT
  Age: 56 Year
  Sex: Male

DRUGS (2)
  1. FAMOTIDINE. [Concomitant]
     Active Substance: FAMOTIDINE
  2. CABOMETYX [Suspect]
     Active Substance: CABOZANTINIB S-MALATE
     Indication: RENAL CANCER
     Dosage: 60 MG, QD
     Route: 048
     Dates: start: 20161201

REACTIONS (2)
  - Myocardial infarction [Fatal]
  - Pneumonia [Unknown]

NARRATIVE: CASE EVENT DATE: 20180526
